FAERS Safety Report 8798324 (Version 1)
Quarter: 2012Q4

REPORT INFORMATION
  Report Type: 
  Country: US (occurrence: US)
  Receive Date: 20120920
  Receipt Date: 20120920
  Transmission Date: 20130627
  Serious: Yes (Hospitalization, Other)
  Sender: FDA-Public Use
  Company Number: US-ELI_LILLY_AND_COMPANY-US201206002136

PATIENT
  Sex: Female
  Weight: 56.24 kg

DRUGS (10)
  1. EVISTA [Suspect]
     Indication: OSTEOPOROSIS
     Dosage: 60 mg, qd
     Route: 048
     Dates: start: 20100928, end: 20120605
  2. CARVEDILOL [Concomitant]
     Dosage: 3.125 mg, bid
  3. CLOPIDOGREL BESYLATE [Concomitant]
     Dosage: 75 mg, qd
  4. CYPROHEPTADINE HYDROCHLORIDE [Concomitant]
  5. HYDROCODONE [Concomitant]
  6. LISINOPRIL [Concomitant]
     Dosage: 2.5 DF, UNK
  7. NABUMETONE [Concomitant]
  8. OMEPRAZOLE [Concomitant]
  9. PROAIR [Concomitant]
  10. SIMVASTATIN [Concomitant]
     Dosage: 40 DF, qd

REACTIONS (6)
  - Coronary artery stenosis [Unknown]
  - Hemiplegia [Recovered/Resolved with Sequelae]
  - Cerebrovascular accident [Recovered/Resolved with Sequelae]
  - Thrombosis [Recovered/Resolved with Sequelae]
  - Aphasia [Recovered/Resolved with Sequelae]
  - Muscular weakness [Unknown]
